FAERS Safety Report 5271876-3 (Version None)
Quarter: 2007Q1

REPORT INFORMATION
  Report Type: 
  Country: None (occurrence: None)
  Receive Date: 20070316
  Receipt Date: 20070301
  Transmission Date: 20070707
  Serious: Yes (Hospitalization)
  Sender: FDA-Public Use
  Company Number: 2006001758

PATIENT
  Age: 57 Year
  Sex: Male

DRUGS (2)
  1. TARCEVA [Suspect]
     Dosage: 100 MG (QD); ORAL
     Route: 048
     Dates: start: 20060412, end: 20060627
  2. CHEMOTHERAPY [Concomitant]

REACTIONS (9)
  - DUODENAL ULCER PERFORATION [None]
  - HAEMATOCRIT DECREASED [None]
  - HAEMOGLOBIN DECREASED [None]
  - MEAN CELL HAEMOGLOBIN CONCENTRATION DECREASED [None]
  - MEAN CELL HAEMOGLOBIN DECREASED [None]
  - NEUTROPHIL COUNT INCREASED [None]
  - RED BLOOD CELL COUNT DECREASED [None]
  - RED CELL DISTRIBUTION WIDTH INCREASED [None]
  - WHITE BLOOD CELL COUNT DECREASED [None]
